FAERS Safety Report 19454009 (Version 8)
Quarter: 2022Q3

REPORT INFORMATION
  Report Type: Report from Study
  Country: CO (occurrence: CO)
  Receive Date: 20210623
  Receipt Date: 20220715
  Transmission Date: 20221027
  Serious: Yes (Hospitalization, Other)
  Sender: FDA-Public Use
  Company Number: NVSC2020CO158638

PATIENT
  Sex: Male
  Weight: 69 kg

DRUGS (10)
  1. VOTRIENT [Suspect]
     Active Substance: PAZOPANIB HYDROCHLORIDE
     Indication: Metastatic renal cell carcinoma
     Dosage: 400 MG, QD
     Route: 048
     Dates: start: 202004
  2. VOTRIENT [Suspect]
     Active Substance: PAZOPANIB HYDROCHLORIDE
     Dosage: 800 MG, QD
     Route: 048
     Dates: start: 20200521
  3. VOTRIENT [Suspect]
     Active Substance: PAZOPANIB HYDROCHLORIDE
     Dosage: 2 DOSAGE FORM, QD
     Route: 048
  4. VOTRIENT [Suspect]
     Active Substance: PAZOPANIB HYDROCHLORIDE
     Dosage: 1 DOSAGE FORM, QD
     Route: 048
  5. VOTRIENT [Suspect]
     Active Substance: PAZOPANIB HYDROCHLORIDE
     Dosage: 400 MG, QD
     Route: 048
  6. VOTRIENT [Suspect]
     Active Substance: PAZOPANIB HYDROCHLORIDE
     Dosage: UNK (BY MOUTH)
     Route: 048
  7. VOTRIENT [Suspect]
     Active Substance: PAZOPANIB HYDROCHLORIDE
     Dosage: 1 OF 400 MG (BY MOUTH), QD
     Route: 048
  8. AMLODIPINE [Suspect]
     Active Substance: AMLODIPINE BESYLATE
     Indication: Hypertension
     Dosage: 10 MG, QD
     Route: 048
     Dates: start: 201912
  9. PRAZOSIN HYDROCHLORIDE [Concomitant]
     Active Substance: PRAZOSIN HYDROCHLORIDE
     Indication: Hypertension
     Dosage: UNK, QD
     Route: 048
     Dates: start: 201912
  10. HYDROMORPHONE [Concomitant]
     Active Substance: HYDROMORPHONE
     Indication: Abdominal pain lower
     Dosage: UNK, PRN
     Route: 048
     Dates: start: 201912

REACTIONS (40)
  - COVID-19 [Unknown]
  - Cough [Unknown]
  - Nephropathy toxic [Unknown]
  - Embolism [Unknown]
  - Metastases to lung [Unknown]
  - Metastases to central nervous system [Unknown]
  - Skin discolouration [Unknown]
  - Back pain [Unknown]
  - Chest discomfort [Unknown]
  - Discomfort [Unknown]
  - Urinary tract infection [Unknown]
  - Abdominal pain [Unknown]
  - Peripheral swelling [Unknown]
  - Skin depigmentation [Unknown]
  - Arthralgia [Unknown]
  - Hair colour changes [Unknown]
  - Diarrhoea [Recovered/Resolved]
  - Hypokinesia [Unknown]
  - Contusion [Unknown]
  - Weight increased [Unknown]
  - Pain [Unknown]
  - Skin exfoliation [Unknown]
  - Illness [Unknown]
  - Feeling abnormal [Unknown]
  - Stomach mass [Unknown]
  - Arthritis [Unknown]
  - Pruritus [Unknown]
  - Dry skin [Unknown]
  - Asthenia [Unknown]
  - Abdominal pain upper [Unknown]
  - Nausea [Unknown]
  - Abscess [Unknown]
  - Weight decreased [Unknown]
  - Vomiting [Recovered/Resolved]
  - Headache [Unknown]
  - Pyrexia [Unknown]
  - Blood potassium increased [Recovered/Resolved]
  - Product supply issue [Unknown]
  - Skin fissures [Unknown]
  - Keratosis pilaris [Unknown]
